FAERS Safety Report 20867486 (Version 1)
Quarter: 2022Q2

REPORT INFORMATION
  Report Type: Spontaneous
  Country: US (occurrence: None)
  Receive Date: 20220523
  Receipt Date: 20220523
  Transmission Date: 20220721
  Serious: Yes (Other)
  Sender: FDA-Public Use
  Company Number: None

PATIENT
  Age: 64 Year
  Sex: Female
  Weight: 81.9 kg

DRUGS (1)
  1. BEBTELOVIMAB [Suspect]
     Active Substance: BEBTELOVIMAB
     Indication: SARS-CoV-2 test positive
     Dosage: OTHER FREQUENCY : ONE DOSE;?
     Route: 040
     Dates: start: 20220502, end: 20220502

REACTIONS (4)
  - Headache [None]
  - Neck pain [None]
  - Throat tightness [None]
  - Blood pressure increased [None]

NARRATIVE: CASE EVENT DATE: 20220502
